FAERS Safety Report 7698685-X (Version None)
Quarter: 2011Q3

REPORT INFORMATION
  Report Type: 
  Country: None (occurrence: None)
  Receive Date: 20110819
  Receipt Date: 20110816
  Transmission Date: 20111222
  Serious: Yes (Death)
  Sender: FDA-Public Use
  Company Number: PHHY2011FR74054

PATIENT
  Age: 31 Year
  Sex: Female

DRUGS (5)
  1. METHADONE HYDROCHLORIDE [Suspect]
     Indication: PAIN
     Dosage: 55 MG/DAY
  2. CLORAZEPATE DIPOTASSIUM [Concomitant]
     Dosage: UNK UKN, UNK
  3. PROPOXYPHENE HYDROCHLORIDE [Concomitant]
     Dosage: UNK UKN, UNK
  4. CYAMEMAZINE [Concomitant]
     Dosage: UNK UKN, UNK
  5. FLUNITRAZEPAM [Concomitant]
     Dosage: UNK UKN, UNK

REACTIONS (1)
  - SUDDEN DEATH [None]
